FAERS Safety Report 26183260 (Version 2)
Quarter: 2025Q4

REPORT INFORMATION
  Report Type: Spontaneous
  Country: US (occurrence: US)
  Receive Date: 20251221
  Receipt Date: 20251224
  Transmission Date: 20260118
  Serious: No
  Sender: SANOFI AVENTIS
  Company Number: US-SA-2025SA379545

PATIENT
  Age: 38 Year
  Sex: Female

DRUGS (2)
  1. DUPIXENT [Suspect]
     Active Substance: DUPILUMAB
     Indication: Dermatitis atopic
     Dosage: 600MG, 1X
     Route: 058
     Dates: start: 20251121, end: 20251121
  2. IRON [Concomitant]
     Active Substance: IRON

REACTIONS (5)
  - Paranasal sinus hyposecretion [Unknown]
  - Dry skin [Unknown]
  - Conjunctivitis [Unknown]
  - Dry eye [Unknown]
  - Eye discharge [Unknown]

NARRATIVE: CASE EVENT DATE: 20251206
